FAERS Safety Report 10098840 (Version 1)
Quarter: 2014Q2

REPORT INFORMATION
  Report Type: Spontaneous
  Country: JP (occurrence: JP)
  Receive Date: 20140423
  Receipt Date: 20140423
  Transmission Date: 20141212
  Serious: Yes (Hospitalization)
  Sender: FDA-Public Use
  Company Number: JP-BRISTOL-MYERS SQUIBB COMPANY-20636759

PATIENT
  Age: 9 Decade
  Sex: 0

DRUGS (1)
  1. METGLUCO [Suspect]
     Indication: DIABETES MELLITUS
     Route: 048

REACTIONS (2)
  - Gastrointestinal disorder [Recovered/Resolved]
  - Blood lactic acid increased [Recovered/Resolved]
